FAERS Safety Report 4419679-3 (Version None)
Quarter: 2004Q3

REPORT INFORMATION
  Report Type: 
  Country: None (occurrence: None)
  Receive Date: 20040804
  Receipt Date: 20040708
  Transmission Date: 20050211
  Serious: Yes (Life-Threatening)
  Sender: FDA-Public Use
  Company Number: JP_040703759

PATIENT
  Age: 62 Year
  Sex: Male
  Weight: 43 kg

DRUGS (6)
  1. ZYPREXA [Suspect]
     Indication: SCHIZOPHRENIA
     Dosage: 5 MG/1 DAY
     Dates: start: 20040311
  2. SERENACE (HALOPERIDOL) [Concomitant]
  3. ARTANE [Concomitant]
  4. MAGNESIUM OXIDE [Concomitant]
  5. ADALAT [Concomitant]
  6. DIOVAN [Concomitant]

REACTIONS (5)
  - FALL [None]
  - HEAD INJURY [None]
  - HEADACHE [None]
  - HYPERTENSION [None]
  - LOSS OF CONSCIOUSNESS [None]
